FAERS Safety Report 5646341-1 (Version None)
Quarter: 2008Q1

REPORT INFORMATION
  Report Type: 
  Country: None (occurrence: None)
  Receive Date: 20080227
  Receipt Date: 20080227
  Transmission Date: 20080703
  Serious: No
  Sender: FDA-Public Use
  Company Number: None

PATIENT
  Age: 64 Year
  Sex: Female
  Weight: 55.7924 kg

DRUGS (1)
  1. FOSAMAX PLUS D [Suspect]
     Indication: OSTEOPOROSIS
     Dosage: 1 TABLET WEEKLY PO
     Route: 048
     Dates: start: 20061225, end: 20080225

REACTIONS (14)
  - ARTHRALGIA [None]
  - DEAFNESS UNILATERAL [None]
  - DEPRESSION [None]
  - DRY EYE [None]
  - FATIGUE [None]
  - FEELING ABNORMAL [None]
  - INSOMNIA [None]
  - MUSCULOSKELETAL STIFFNESS [None]
  - MYALGIA [None]
  - OEDEMA PERIPHERAL [None]
  - PAIN IN EXTREMITY [None]
  - RESTLESS LEGS SYNDROME [None]
  - SINUS DISORDER [None]
  - TINNITUS [None]
